FAERS Safety Report 5968862-4 (Version None)
Quarter: 2008Q4

REPORT INFORMATION
  Report Type: 
  Country: None (occurrence: None)
  Receive Date: 20081125
  Receipt Date: 20081125
  Transmission Date: 20090506
  Serious: Yes (Death)
  Sender: FDA-Public Use
  Company Number: None

PATIENT
  Age: 20 Year
  Sex: Male
  Weight: 79.3795 kg

DRUGS (1)
  1. METHADONE HCL [Suspect]
     Indication: DRUG DEPENDENCE
     Dates: start: 20050128, end: 20061223

REACTIONS (3)
  - DRUG DEPENDENCE [None]
  - DRUG DIVERSION [None]
  - OVERDOSE [None]
